FAERS Safety Report 9543216 (Version 1)
Quarter: 2013Q3

REPORT INFORMATION
  Report Type: Spontaneous
  Country: AT (occurrence: AT)
  Receive Date: 20130923
  Receipt Date: 20130923
  Transmission Date: 20140515
  Serious: Yes (Life-Threatening, Hospitalization)
  Sender: FDA-Public Use
  Company Number: AT-UCBSA-097731

PATIENT
  Age: 68 Year
  Sex: Male
  Weight: 70 kg

DRUGS (7)
  1. CIMZIA [Suspect]
     Indication: RHEUMATOID ARTHRITIS
     Dates: start: 20121206, end: 201307
  2. EBETREXAT [Concomitant]
     Indication: RHEUMATOID ARTHRITIS
     Dates: start: 201203
  3. ALNA RETARD [Concomitant]
  4. PROSTA URGENIN [Concomitant]
  5. FOLSAN [Concomitant]
  6. OLEOVIT [Concomitant]
  7. CAL D VLTA [Concomitant]

REACTIONS (1)
  - Prostate cancer [Recovered/Resolved with Sequelae]
